FAERS Safety Report 10214646 (Version 1)
Quarter: 2014Q2

REPORT INFORMATION
  Report Type: Spontaneous
  Country: US (occurrence: None)
  Receive Date: 20140602
  Receipt Date: 20140602
  Transmission Date: 20141212
  Serious: Yes (Death)
  Sender: FDA-Public Use
  Company Number: None

PATIENT
  Age: 66 Year
  Sex: Male

DRUGS (4)
  1. XTANDI 40MG ASTELLAS [Suspect]
     Indication: PROSTATE CANCER
     Route: 048
     Dates: start: 20130924, end: 20140104
  2. PREDNISONE [Concomitant]
  3. AMBIEN [Concomitant]
  4. PROCRIT [Concomitant]

REACTIONS (1)
  - Death [None]
